FAERS Safety Report 8160798-6 (Version None)
Quarter: 2012Q1

REPORT INFORMATION
  Report Type: 
  Country: None (occurrence: None)
  Receive Date: 20120223
  Receipt Date: 20120217
  Transmission Date: 20120608
  Serious: Yes (Death)
  Sender: FDA-Public Use
  Company Number: PHHY2012CA008657

PATIENT
  Sex: Male

DRUGS (7)
  1. SOFLAX [Concomitant]
     Dosage: 100 MG, 2 CAPSULES NIGHT
     Dates: start: 20110916
  2. NOVOPREDNISONE [Concomitant]
     Dosage: 50 MG, 1 TABLET DAILY
     Dates: start: 20111114
  3. BIAXIN [Concomitant]
     Dosage: 500 MG, 2 TABLETS ONCE DAILY FOR 9 DAYS
  4. CLOZARIL [Suspect]
     Indication: SCHIZOPHRENIA
     Dosage: 400 MG
     Dates: start: 20020115
  5. CLOZARIL [Suspect]
     Dosage: 100 MG 4 TABLETS NIGHTLY
     Dates: start: 20111125
  6. LANSOPRAZOLE [Concomitant]
     Dosage: 30 MG, 1 CAPSULE DAILY
     Dates: start: 20111125
  7. VENTOLIN [Concomitant]
     Dosage: 4 PUFFS 3 TIMES A DAY TO FOUR TIMES A DAY
     Dates: start: 20111114

REACTIONS (2)
  - LUNG NEOPLASM MALIGNANT [None]
  - WRONG TECHNIQUE IN DRUG USAGE PROCESS [None]
